FAERS Safety Report 5231012-6 (Version None)
Quarter: 2007Q1

REPORT INFORMATION
  Report Type: 
  Country: None (occurrence: None)
  Receive Date: 20070206
  Receipt Date: 20070131
  Transmission Date: 20070707
  Serious: Yes (Hospitalization)
  Sender: FDA-Public Use
  Company Number: GB-GLAXOSMITHKLINE-B0361333A

PATIENT
  Sex: Female

DRUGS (9)
  1. PAROXETINE HYDROCHLORIDE [Suspect]
     Indication: DEPRESSION
     Route: 065
     Dates: start: 20000301, end: 20010601
  2. PROZAC [Concomitant]
     Indication: DEPRESSION
  3. VENLAFAXINE HCL [Concomitant]
  4. CHLORPROMAZINE [Concomitant]
  5. MIRTAZAPINE [Concomitant]
  6. AMITRIPTYLINE HCL [Concomitant]
  7. DIAZEPAM [Concomitant]
  8. TRAMADOL HCL [Concomitant]
  9. PERINDOPRIL ERBUMINE [Concomitant]

REACTIONS (12)
  - ANXIETY [None]
  - APATHY [None]
  - DECREASED APPETITE [None]
  - DEPRESSED MOOD [None]
  - DEPRESSION [None]
  - DISTURBANCE IN ATTENTION [None]
  - DRUG WITHDRAWAL SYNDROME [None]
  - HEADACHE [None]
  - INTENTIONAL SELF-INJURY [None]
  - PANIC ATTACK [None]
  - SYNCOPE [None]
  - VISION BLURRED [None]
